FAERS Safety Report 16836708 (Version 6)
Quarter: 2020Q1

REPORT INFORMATION
  Report Type: Spontaneous
  Country: US (occurrence: US)
  Receive Date: 20190922
  Receipt Date: 20200313
  Transmission Date: 20200409
  Serious: No
  Sender: FDA-Public Use
  Company Number: US-PHARMING-PHAUS2019000525

PATIENT

DRUGS (2)
  1. RUCONEST [Suspect]
     Active Substance: HUMAN C1-ESTERASE INHIBITOR
     Dosage: 3600 IU INTERNATIONAL UNIT(S), EVERY 2 DAYS
     Route: 042
     Dates: start: 20180410
  2. RUCONEST [Suspect]
     Active Substance: HUMAN C1-ESTERASE INHIBITOR
     Indication: HEREDITARY ANGIOEDEMA
     Dosage: 3250 IU INTERNATIONAL UNIT(S), EVERY 2 DAYS
     Route: 042
     Dates: start: 20180409

REACTIONS (2)
  - Hereditary angioedema [Unknown]
  - Intentional product use issue [Unknown]
